FAERS Safety Report 23293116 (Version 4)
Quarter: 2023Q4

REPORT INFORMATION
  Report Type: Spontaneous
  Country: US (occurrence: US)
  Receive Date: 20231213
  Receipt Date: 20231228
  Transmission Date: 20240110
  Serious: No
  Sender: FDA-Public Use
  Company Number: US-BIOGEN-2023BI01210639

PATIENT
  Age: 34 Year
  Sex: Male

DRUGS (4)
  1. AVONEX PEN [Suspect]
     Active Substance: INTERFERON BETA-1A
     Indication: Multiple sclerosis
     Route: 050
     Dates: start: 20210812, end: 20230914
  2. AVONEX PEN [Suspect]
     Active Substance: INTERFERON BETA-1A
     Route: 050
     Dates: start: 20130726
  3. AVONEX PEN [Suspect]
     Active Substance: INTERFERON BETA-1A
  4. AVONEX PEN [Suspect]
     Active Substance: INTERFERON BETA-1A

REACTIONS (9)
  - Back pain [Not Recovered/Not Resolved]
  - Gait disturbance [Not Recovered/Not Resolved]
  - Memory impairment [Unknown]
  - Pain [Not Recovered/Not Resolved]
  - Neck pain [Not Recovered/Not Resolved]
  - Asthenia [Not Recovered/Not Resolved]
  - Hypoaesthesia [Not Recovered/Not Resolved]
  - Fatigue [Unknown]
  - Dizziness [Unknown]

NARRATIVE: CASE EVENT DATE: 20230613
